FAERS Safety Report 7802442-0 (Version None)
Quarter: 2011Q4

REPORT INFORMATION
  Report Type: 
  Country: None (occurrence: None)
  Receive Date: 20111007
  Receipt Date: 20101207
  Transmission Date: 20120403
  Serious: Yes (Other)
  Sender: FDA-Public Use
  Company Number: US-GLAXOSMITHKLINE-A0898370A

PATIENT
  Age: 69 Year
  Sex: Male

DRUGS (3)
  1. VOTRIENT [Suspect]
     Indication: HEPATIC NEOPLASM MALIGNANT
     Dosage: 200MG TWICE PER DAY
     Route: 048
     Dates: start: 20101001
  2. AFINITOR [Concomitant]
  3. LOSARTAN POTASSIUM [Concomitant]

REACTIONS (3)
  - PYREXIA [None]
  - TOOTH ABSCESS [None]
  - ANAEMIA [None]
